FAERS Safety Report 8762916 (Version 1)
Quarter: 2012Q4

REPORT INFORMATION
  Report Type: Spontaneous
  Country: US (occurrence: None)
  Receive Date: 20120830
  Receipt Date: 20120830
  Transmission Date: 20130627
  Serious: Yes (Hospitalization)
  Sender: FDA-Public Use
  Company Number: None

PATIENT
  Age: 70 Year
  Sex: Male
  Weight: 77.2 kg

DRUGS (2)
  1. EVEROLIMUS [Suspect]
     Indication: LYMPHOMA
     Route: 048
     Dates: start: 20120307, end: 20120829
  2. BORTEZOMIB [Suspect]
     Dosage: BORTEZOMIB 2.6MGIVDAY 1, DAY #4, DAY#8, DAY#11 Q 28 DAYS
     Route: 042
     Dates: start: 20120307, end: 20120828

REACTIONS (2)
  - Activities of daily living impaired [None]
  - Neuralgia [None]
